FAERS Safety Report 12628502 (Version 1)
Quarter: 2016Q3

REPORT INFORMATION
  Report Type: Spontaneous
  Country: US (occurrence: US)
  Receive Date: 20160808
  Receipt Date: 20160808
  Transmission Date: 20161109
  Serious: No
  Sender: FDA-Public Use
  Company Number: US-JAZZ-2016-US-004184

PATIENT
  Sex: Female

DRUGS (16)
  1. CHROMIUM GTF [Concomitant]
  2. SUDAFED [Concomitant]
     Active Substance: PSEUDOEPHEDRINE HYDROCHLORIDE
  3. TYLENOL EXTRA STRENGTH [Concomitant]
     Active Substance: ACETAMINOPHEN
  4. IBUPROFEN. [Concomitant]
     Active Substance: IBUPROFEN
  5. FLUTICASONE PROPRIONATE [Concomitant]
     Active Substance: FLUTICASONE PROPIONATE
  6. MULTIVITAMINS [Concomitant]
     Active Substance: VITAMINS
  7. GARLIC. [Concomitant]
     Active Substance: GARLIC
  8. MICROGESTIN FE [Concomitant]
     Active Substance: ETHINYL ESTRADIOL\FERROUS FUMARATE\NORETHINDRONE ACETATE
  9. XYREM [Suspect]
     Active Substance: SODIUM OXYBATE
     Indication: NARCOLEPSY
     Dosage: 2.25 G, BID
     Route: 048
     Dates: start: 201602
  10. ADDERALL [Concomitant]
     Active Substance: AMPHETAMINE ASPARTATE\AMPHETAMINE SULFATE\DEXTROAMPHETAMINE SACCHARATE\DEXTROAMPHETAMINE SULFATE
  11. COLCRYS [Concomitant]
     Active Substance: COLCHICINE
  12. TEA [Concomitant]
     Active Substance: TEA LEAF
  13. METAXALONE. [Concomitant]
     Active Substance: METAXALONE
  14. PREDNISONE. [Concomitant]
     Active Substance: PREDNISONE
  15. CAYENNE [Concomitant]
  16. GLUTAMINE [Concomitant]
     Active Substance: GLUTAMINE

REACTIONS (4)
  - Coordination abnormal [Unknown]
  - Dizziness [Not Recovered/Not Resolved]
  - Nausea [Not Recovered/Not Resolved]
  - Immobile [Not Recovered/Not Resolved]

NARRATIVE: CASE EVENT DATE: 2016
